FAERS Safety Report 4467323-1 (Version None)
Quarter: 2004Q4

REPORT INFORMATION
  Report Type: 
  Country: None (occurrence: None)
  Receive Date: 20041004
  Receipt Date: 20040923
  Transmission Date: 20050328
  Serious: Yes (Hospitalization)
  Sender: FDA-Public Use
  Company Number: TPA2004A01149

PATIENT
  Age: 58 Year
  Sex: Male
  Weight: 90.7194 kg

DRUGS (5)
  1. ACTOS [Suspect]
     Indication: DIABETES MELLITUS NON-INSULIN-DEPENDENT
     Dosage: 45 MG, 1 IN D, PER ORAL
     Route: 048
     Dates: start: 20000923
  2. AVAPRO (IRBESARTAN) (300 MILLIGRAM) [Concomitant]
  3. ZETIA (EZETIMIBE) (10 MILLIGRAM) [Concomitant]
  4. HCTZ (HYDROCHLOROTHIAZIDE ) (37.5 MILLIGRAM) [Concomitant]
  5. LOPRESSOR (METOPROLOL TARTRATE) (50 MILLIGRAM) [Concomitant]

REACTIONS (8)
  - CARDIAC DISORDER [None]
  - CONDITION AGGRAVATED [None]
  - DYSPNOEA [None]
  - INFECTION [None]
  - INTERVERTEBRAL DISC PROTRUSION [None]
  - RENAL IMPAIRMENT [None]
  - SKIN DISCOLOURATION [None]
  - VASCULAR OCCLUSION [None]
